FAERS Safety Report 14789982 (Version 1)
Quarter: 2018Q2

REPORT INFORMATION
  Report Type: Spontaneous
  Country: US (occurrence: US)
  Receive Date: 20180413
  Receipt Date: 20180413
  Transmission Date: 20180711
  Serious: Yes (Hospitalization, Other)
  Sender: FDA-Public Use
  Company Number: None

PATIENT
  Age: 65 Year
  Sex: Male

DRUGS (19)
  1. DARUNAVIR (PREZISTA) 600 MG TABS TABLET [Concomitant]
  2. WARFARIN (COUMADIN) 5 MG TABLET [Concomitant]
  3. OMEPRAZOLE (PRILOSEC) 20 MG CAPSULE [Concomitant]
  4. RALTEGRAVIR (ISENTRESS) 400 MG TABS [Concomitant]
  5. FLUTICASONE (FLONASE) 50 MCG/ACT SUSPENSION [Concomitant]
  6. SULFAMETHOXAZOLE-TRIMETHOPRIM (BACTRIM DS,SEPTRA DS) 800-160 MG TABLET [Concomitant]
  7. BUTALBITAL-ACETAMINOPHEN-CAFFEINE (FIORICET) 50-325-40 MG TABLET [Concomitant]
  8. NOVOLOG 12 UNITS TID [Concomitant]
  9. HYDROCHLOROTHIAZIDE (HYDRODIURIL) 25 MG TABLET [Concomitant]
  10. INTELENCE 200 MG TABLET [Concomitant]
  11. NORVIR [Concomitant]
     Active Substance: RITONAVIR
  12. OXYCODONE (ROXICODONE) 30 MG TABLET [Concomitant]
  13. AMITRIPTYLINE (ELAVIL) 25 MG [Concomitant]
  14. SENNA-DOCUSATE (PERICOLACE) 8.6-50 MG PER TABLET [Concomitant]
  15. LISINOPRIL. [Suspect]
     Active Substance: LISINOPRIL
  16. CYPROHEPTADINE (PERIACTIN) 4 MG TABLET [Concomitant]
  17. GABAPENTIN (NEURONTIN) 300 MG CAPSULE [Concomitant]
  18. LANTUS 36  UNITS NIGHTLY [Concomitant]
  19. LACTULOSE 10 GM/15ML SOLUTION [Concomitant]

REACTIONS (3)
  - Dysphagia [None]
  - Pharyngeal oedema [None]
  - Dyspnoea [None]

NARRATIVE: CASE EVENT DATE: 20171016
